FAERS Safety Report 5026892-3 (Version None)
Quarter: 2006Q2

REPORT INFORMATION
  Report Type: 
  Country: None (occurrence: None)
  Receive Date: 20060609
  Receipt Date: 20060224
  Transmission Date: 20061013
  Serious: Yes (Life-Threatening, Hospitalization, Disabling)
  Sender: FDA-Public Use
  Company Number: SU-2006-004464

PATIENT
  Age: 78 Year
  Sex: Female
  Weight: 51.8 kg

DRUGS (29)
  1. OLMETEC [Suspect]
     Indication: HYPERTENSION
     Dosage: 20 MG BID 050
     Dates: start: 20051013, end: 20051122
  2. PRODIF [Suspect]
     Dosage: 252.3 MG IV
     Route: 042
     Dates: start: 20051118, end: 20051122
  3. KIPRES [Suspect]
     Indication: ASTHMA
     Dosage: 10 MG QD 050
     Dates: start: 20051023, end: 20051122
  4. CATABON [Suspect]
     Indication: SHOCK
     Dosage: 10 MG/ML Q1HR IV
     Route: 042
     Dates: start: 20051123, end: 20051209
  5. DIFLUCAN [Concomitant]
  6. PENTCILLIN [Concomitant]
  7. LASIX [Concomitant]
  8. ISEPACIN [Concomitant]
  9. AMICALIQ [Concomitant]
  10. NEOPAREN [Concomitant]
  11. BUFFERIN [Concomitant]
  12. ZONISAMIDE [Concomitant]
  13. NEOPHYLLIN [Concomitant]
  14. MUCODYNE [Concomitant]
  15. LAC B [Concomitant]
  16. ALEVIATIN [Concomitant]
  17. DEPAKENE [Concomitant]
  18. GASTER [Concomitant]
  19. TEGRETOL [Concomitant]
  20. LASIX [Concomitant]
  21. MAGNESIUM OXIDE [Concomitant]
  22. SYMMETREL [Concomitant]
  23. FRANDOL [Concomitant]
  24. CRAVIT [Concomitant]
  25. LACTEC G [Concomitant]
  26. NEOLAMIN 3B INJ. [Concomitant]
  27. ASCORBIC ACID [Concomitant]
  28. VEEN 3G [Concomitant]
  29. ELEMENMIC [Concomitant]

REACTIONS (15)
  - ASTHMA [None]
  - ATRIOVENTRICULAR BLOCK [None]
  - BLOOD PRESSURE SYSTOLIC INCREASED [None]
  - BRADYARRHYTHMIA [None]
  - CARDIO-RESPIRATORY ARREST [None]
  - EPILEPSY [None]
  - HYPOVENTILATION [None]
  - INFLAMMATION [None]
  - MENTAL IMPAIRMENT [None]
  - PNEUMONIA BACTERIAL [None]
  - PRODUCTIVE COUGH [None]
  - PYREXIA [None]
  - RESPIRATORY MONILIASIS [None]
  - SHOCK [None]
  - VOMITING [None]
